FAERS Safety Report 16046456 (Version 1)
Quarter: 2019Q1

REPORT INFORMATION
  Report Type: Report from Study
  Country: CA (occurrence: CA)
  Receive Date: 20190307
  Receipt Date: 20190307
  Transmission Date: 20190418
  Serious: Yes (Other)
  Sender: FDA-Public Use
  Company Number: PHHY2016CA042431

PATIENT
  Age: 75 Year
  Sex: Male

DRUGS (11)
  1. ZOMETA [Suspect]
     Active Substance: ZOLEDRONIC ACID
     Dosage: 2 MG, QMO (EVERY 4 WEEKS)
     Route: 065
     Dates: start: 20161019
  2. LASIX [Concomitant]
     Active Substance: FUROSEMIDE
     Indication: PRODUCT USED FOR UNKNOWN INDICATION
     Route: 065
  3. ZOMETA [Suspect]
     Active Substance: ZOLEDRONIC ACID
     Indication: PLASMA CELL MYELOMA
     Dosage: 4 MG, QMO (EVERY 4 WEEKS)
     Route: 042
     Dates: start: 20151111
  4. ZOMETA [Suspect]
     Active Substance: ZOLEDRONIC ACID
     Dosage: 3 MG, QMO (EVERY 4 WEEKS)
     Route: 042
  5. ZOMETA [Suspect]
     Active Substance: ZOLEDRONIC ACID
     Dosage: 2 MG, ONCE/SINGLE
     Route: 065
  6. ZOMETA [Suspect]
     Active Substance: ZOLEDRONIC ACID
     Dosage: 2 MG, QMO (EVERY 4 WEEKS)
     Route: 030
     Dates: end: 201711
  7. ACLASTA [Suspect]
     Active Substance: ZOLEDRONIC ACID
     Indication: PRODUCT USED FOR UNKNOWN INDICATION
     Route: 065
  8. DEXAMETHASONE. [Concomitant]
     Active Substance: DEXAMETHASONE
     Indication: PRODUCT USED FOR UNKNOWN INDICATION
     Dosage: 12 MG, QW (FOR 4 WEEKS)
     Route: 065
  9. ZOMETA [Suspect]
     Active Substance: ZOLEDRONIC ACID
     Dosage: 3 MG, QMO (EVERY 4 WEEKS)
     Route: 065
  10. NINLARO [Concomitant]
     Active Substance: IXAZOMIB CITRATE
     Indication: PRODUCT USED FOR UNKNOWN INDICATION
     Dosage: 3 MG, QW (FOR 2-4WEEKS)
     Route: 065
     Dates: start: 20181207
  11. REVLIMID [Concomitant]
     Active Substance: LENALIDOMIDE
     Indication: PRODUCT USED FOR UNKNOWN INDICATION
     Dosage: 15 MG, QOD (21-28-DAY CYCLE )
     Route: 065

REACTIONS (24)
  - Osteoporosis [Recovering/Resolving]
  - Spinal compression fracture [Recovering/Resolving]
  - Dizziness [Recovering/Resolving]
  - Right ventricular ejection fraction decreased [Recovering/Resolving]
  - Bronchial hyperreactivity [Recovering/Resolving]
  - Primary amyloidosis [Recovering/Resolving]
  - Cardiomyopathy [Recovering/Resolving]
  - Chronic kidney disease [Unknown]
  - Renal failure [Unknown]
  - Fall [Recovering/Resolving]
  - Haemoglobin increased [Recovering/Resolving]
  - Bone lesion [Recovering/Resolving]
  - Oedema peripheral [Recovering/Resolving]
  - Ejection fraction decreased [Recovering/Resolving]
  - Left ventricular hypertrophy [Recovering/Resolving]
  - Body temperature decreased [Unknown]
  - Hypertension [Recovering/Resolving]
  - Weight decreased [Recovering/Resolving]
  - Renal impairment [Not Recovered/Not Resolved]
  - Type 2 diabetes mellitus [Recovering/Resolving]
  - Diastolic dysfunction [Recovering/Resolving]
  - Dyspnoea [Recovering/Resolving]
  - Exercise tolerance decreased [Recovering/Resolving]
  - Rib fracture [Recovering/Resolving]

NARRATIVE: CASE EVENT DATE: 20160608
